FAERS Safety Report 6313862-8 (Version None)
Quarter: 2009Q3

REPORT INFORMATION
  Report Type: 
  Country: None (occurrence: None)
  Receive Date: 20090818
  Receipt Date: 20090810
  Transmission Date: 20100115
  Serious: Yes (Hospitalization)
  Sender: FDA-Public Use
  Company Number: TR-ELI_LILLY_AND_COMPANY-TR200908001768

PATIENT
  Weight: 3 kg

DRUGS (2)
  1. HUMULIN R [Suspect]
     Indication: GESTATIONAL DIABETES
     Dosage: 14 IU, 3/D
     Route: 058
     Dates: start: 20090201, end: 20090527
  2. HUMULIN N [Suspect]
     Indication: GESTATIONAL DIABETES
     Dosage: 10 U, DAILY (1/D)
     Dates: start: 20090201, end: 20090527

REACTIONS (2)
  - DRUG EXPOSURE DURING PREGNANCY [None]
  - RESPIRATORY FAILURE [None]
